FAERS Safety Report 10277015 (Version 1)
Quarter: 2014Q3

REPORT INFORMATION
  Report Type: Spontaneous
  Country: US (occurrence: None)
  Receive Date: 20140701
  Receipt Date: 20140701
  Transmission Date: 20150326
  Serious: Yes (Other)
  Sender: FDA-Public Use
  Company Number: None

PATIENT
  Age: 75 Year
  Sex: Female
  Weight: 70.76 kg

DRUGS (13)
  1. VITAMIN B COMPLEX [Concomitant]
     Active Substance: CYANOCOBALAMIN\DEXPANTHENOL\NIACINAMIDE\PYRIDOXINE HYDROCHLORIDE\RIBOFLAVIN 5^-PHOSPHATE SODIUM\THIAMINE HYDROCHLORIDE\VITAMIN B COMPLEX
  2. METOPROLOL [Concomitant]
     Active Substance: METOPROLOL
  3. MULTI V [Concomitant]
  4. CAL [Concomitant]
  5. CLOPIDOGREL [Suspect]
     Active Substance: CLOPIDOGREL BISULFATE
     Indication: COAGULOPATHY
     Route: 048
     Dates: start: 20140617, end: 20140619
  6. CENTRUM [Concomitant]
     Active Substance: VITAMINS
  7. ZINC [Concomitant]
     Active Substance: ZINC\ZINC CHLORIDE
  8. ATORVASTATIN [Concomitant]
     Active Substance: ATORVASTATIN
  9. COQ10 [Concomitant]
     Active Substance: UBIDECARENONE
  10. EFFIENT [Concomitant]
     Active Substance: PRASUGREL HYDROCHLORIDE
  11. LISINOPRIL. [Concomitant]
     Active Substance: LISINOPRIL
  12. VITAMIN B12 [Concomitant]
     Active Substance: CYANOCOBALAMIN
  13. E [Concomitant]

REACTIONS (6)
  - Back pain [None]
  - Dyspnoea [None]
  - Rash pruritic [None]
  - Skin burning sensation [None]
  - Skin discolouration [None]
  - Rash erythematous [None]
